FAERS Safety Report 25200019 (Version 1)
Quarter: 2025Q2

REPORT INFORMATION
  Report Type: Spontaneous
  Country: US (occurrence: US)
  Receive Date: 20250415
  Receipt Date: 20250415
  Transmission Date: 20250716
  Serious: No
  Sender: PIERREL
  Company Number: US-PIERREL S.P.A.-2025PIR00007

PATIENT
  Age: 6 Decade
  Sex: Female

DRUGS (2)
  1. ORABLOC [Suspect]
     Active Substance: ARTICAINE HYDROCHLORIDE\EPINEPHRINE BITARTRATE
     Indication: Nerve block
     Route: 004
  2. ORABLOC [Suspect]
     Active Substance: ARTICAINE HYDROCHLORIDE\EPINEPHRINE BITARTRATE
     Indication: Tooth restoration

REACTIONS (2)
  - Tremor [Recovered/Resolved]
  - Chest discomfort [Recovered/Resolved]
